FAERS Safety Report 18209370 (Version 2)
Quarter: 2020Q3

REPORT INFORMATION
  Report Type: Report from Study
  Country: BR (occurrence: BR)
  Receive Date: 20200828
  Receipt Date: 20200908
  Transmission Date: 20201103
  Serious: Yes (Other)
  Sender: FDA-Public Use
  Company Number: BR-UCBSA-2020030472

PATIENT
  Age: 56 Year
  Sex: Female
  Weight: 66 kg

DRUGS (4)
  1. CERTOLIZUMAB PEGOL RA [Suspect]
     Active Substance: CERTOLIZUMAB PEGOL
     Indication: RHEUMATOID ARTHRITIS
     Dosage: 400 MILLIGRAM, EV 4 WEEKS
     Route: 058
     Dates: start: 202002, end: 202007
  2. CYMBI [AMPICILLIN TRIHYDRATE] [Concomitant]
     Indication: FIBROMYALGIA
     Dosage: 120 MILLIGRAM, ONCE DAILY (QD)
     Route: 048
     Dates: start: 2012
  3. ARAVA [Concomitant]
     Active Substance: LEFLUNOMIDE
     Indication: FIBROMYALGIA
     Dosage: 150 MILLIGRAM, ONCE DAILY (QD)
     Dates: start: 2012
  4. LIRICA [Concomitant]
     Active Substance: PREGABALIN
     Indication: FIBROMYALGIA
     Dosage: 150 MILLIGRAM, ONCE DAILY (QD)
     Route: 048
     Dates: start: 2012

REACTIONS (1)
  - COVID-19 [Recovered/Resolved]

NARRATIVE: CASE EVENT DATE: 202007
